FAERS Safety Report 6304910-X (Version None)
Quarter: 2009Q3

REPORT INFORMATION
  Report Type: 
  Country: None (occurrence: None)
  Receive Date: 20090811
  Receipt Date: 20090804
  Transmission Date: 20100115
  Serious: Yes (Other)
  Sender: FDA-Public Use
  Company Number: US-GENENTECH-288128

PATIENT
  Sex: Female

DRUGS (2)
  1. HERCEPTIN [Suspect]
     Indication: BREAST CANCER
     Dosage: UNK
  2. LAPATINIB [Suspect]
     Indication: BREAST CANCER
     Dosage: UNK
     Route: 048

REACTIONS (2)
  - BRAIN NEOPLASM [None]
  - LUNG NEOPLASM MALIGNANT [None]
